FAERS Safety Report 18587435 (Version 2)
Quarter: 2020Q4

REPORT INFORMATION
  Report Type: Spontaneous
  Country: CN (occurrence: CN)
  Receive Date: 20201207
  Receipt Date: 20201208
  Transmission Date: 20210114
  Serious: Yes (Other)
  Sender: FDA-Public Use
  Company Number: CN-INCYTE CORPORATION-2020IN012130

PATIENT

DRUGS (3)
  1. JAKAVI [Suspect]
     Active Substance: RUXOLITINIB
     Indication: MYELOFIBROSIS
     Dosage: 60 MG (PER DAY)
     Route: 048
     Dates: start: 202006, end: 202009
  2. AZACITIDINE. [Concomitant]
     Active Substance: AZACITIDINE
     Indication: MYELODYSPLASTIC SYNDROME
     Dosage: 100 MG (PER DAY)
     Route: 058
     Dates: start: 202009
  3. JAKAVI [Suspect]
     Active Substance: RUXOLITINIB
     Dosage: 50 MG (PER DAY)
     Route: 048
     Dates: start: 202009

REACTIONS (5)
  - Tension [Unknown]
  - Platelet count decreased [Unknown]
  - Overdose [Not Recovered/Not Resolved]
  - Blast cell count increased [Unknown]
  - Insomnia [Unknown]

NARRATIVE: CASE EVENT DATE: 202008
